FAERS Safety Report 21663478 (Version 1)
Quarter: 2022Q4

REPORT INFORMATION
  Report Type: Spontaneous
  Country: US (occurrence: US)
  Receive Date: 20221130
  Receipt Date: 20221130
  Transmission Date: 20230113
  Serious: Yes (Hospitalization, Other)
  Sender: FDA-Public Use
  Company Number: US-JUBILANT CADISTA PHARMACEUTICALS-2022JUB00450

PATIENT
  Age: 40 Year
  Sex: Male

DRUGS (5)
  1. PREDNISONE [Suspect]
     Active Substance: PREDNISONE
     Indication: COVID-19
     Dosage: 0.5 MG/KG
     Dates: start: 2022
  2. DEXAMETHASONE [Suspect]
     Active Substance: DEXAMETHASONE
     Indication: COVID-19
     Dosage: TAPER
     Dates: start: 202203, end: 202204
  3. REMDESIVIR [Concomitant]
     Active Substance: REMDESIVIR
     Indication: COVID-19
     Dosage: UNK
     Route: 042
     Dates: start: 202203
  4. OXYGEN [Suspect]
     Active Substance: OXYGEN
     Indication: COVID-19
     Dosage: 2 L, 2ND DOSE
     Route: 045
  5. OXYGEN [Suspect]
     Active Substance: OXYGEN
     Dosage: 4 L, 2ND DOSE
     Route: 045

REACTIONS (3)
  - SARS-CoV-2 viraemia [Recovered/Resolved]
  - COVID-19 pneumonia [Recovered/Resolved]
  - Bronchopulmonary aspergillosis [Recovered/Resolved]

NARRATIVE: CASE EVENT DATE: 20220101
